FAERS Safety Report 23185043 (Version 1)
Quarter: 2023Q4

REPORT INFORMATION
  Report Type: Spontaneous
  Country: US (occurrence: US)
  Receive Date: 20231115
  Receipt Date: 20231115
  Transmission Date: 20240109
  Serious: Yes (Hospitalization)
  Sender: FDA-Public Use
  Company Number: US-STRIDES ARCOLAB LIMITED-2023SP016752

PATIENT
  Age: 64 Year
  Sex: Female
  Weight: 93 kg

DRUGS (3)
  1. ISOSORBIDE MONONITRATE [Suspect]
     Active Substance: ISOSORBIDE MONONITRATE
     Indication: Product used for unknown indication
     Dosage: 1000 MILLIGRAM
     Route: 048
  2. ACETAMINOPHEN [Suspect]
     Active Substance: ACETAMINOPHEN
     Indication: Product used for unknown indication
     Dosage: 30000 MILLIGRAM
     Route: 048
  3. RIVAROXABAN [Suspect]
     Active Substance: RIVAROXABAN
     Indication: Product used for unknown indication
     Dosage: 5000 MILLIGRAM
     Route: 048

REACTIONS (16)
  - Suicide attempt [Unknown]
  - Suicidal ideation [Unknown]
  - Epistaxis [Unknown]
  - Haematoma [Unknown]
  - Hemiparesis [Unknown]
  - Haemoptysis [Recovered/Resolved]
  - Intentional self-injury [Unknown]
  - Intentional product misuse [Unknown]
  - Nausea [Unknown]
  - Dizziness [Unknown]
  - Headache [Unknown]
  - Haemorrhage [Recovered/Resolved]
  - Oedema peripheral [Unknown]
  - Non-pitting oedema [Unknown]
  - Toxicity to various agents [Recovered/Resolved]
  - Intentional overdose [Unknown]
